FAERS Safety Report 18107394 (Version 1)
Quarter: 2020Q3

REPORT INFORMATION
  Report Type: Report from Study
  Country: CA (occurrence: CA)
  Receive Date: 20200803
  Receipt Date: 20200803
  Transmission Date: 20201103
  Serious: Yes (Other)
  Sender: FDA-Public Use
  Company Number: CA-NALPROPION PHARMACEUTICALS INC.-2020-010578

PATIENT

DRUGS (8)
  1. VITAMIN D                          /00107901/ [Concomitant]
     Active Substance: ERGOCALCIFEROL
     Indication: SUPPLEMENTATION THERAPY
     Dosage: DAILY
     Route: 048
  2. CONTRAVE [Suspect]
     Active Substance: BUPROPION HYDROCHLORIDE\NALTREXONE HYDROCHLORIDE
     Dosage: 90 MG/8 MG, 2 IN AM (MORNING), 1 IN PM (EVENING), START DATE; 10/APR/2020 (APPROXIMATELY)
     Route: 048
     Dates: start: 202004, end: 202004
  3. VITAMIN C [Concomitant]
     Active Substance: ASCORBIC ACID
     Indication: SUPPLEMENTATION THERAPY
     Dosage: DAILY
     Route: 048
  4. CONTRAVE [Suspect]
     Active Substance: BUPROPION HYDROCHLORIDE\NALTREXONE HYDROCHLORIDE
     Dosage: 90 MG/8 MG, START DATE: 03/APR/2020 (APPROXIMATELY) (1 DOSAGE FORMS,2 IN 1 D)
     Route: 048
     Dates: start: 202004, end: 202004
  5. CRESTOR [Concomitant]
     Active Substance: ROSUVASTATIN CALCIUM
     Indication: LIPIDS ABNORMAL
     Dosage: 10 MG
     Route: 048
  6. OMEGA 3                            /01334101/ [Concomitant]
     Active Substance: OMEGA-3 FATTY ACIDS
     Indication: SUPPLEMENTATION THERAPY
     Dosage: DAILY
     Route: 048
  7. CONTRAVE [Suspect]
     Active Substance: BUPROPION HYDROCHLORIDE\NALTREXONE HYDROCHLORIDE
     Indication: WEIGHT CONTROL
     Dosage: 90 MG/8 MG, START DATE: 27/MAR/2020 (APPROXIMATELY) (1 DOSAGE FORMS,1 IN 1 D)
     Route: 048
     Dates: start: 202003, end: 202004
  8. CONTRAVE [Suspect]
     Active Substance: BUPROPION HYDROCHLORIDE\NALTREXONE HYDROCHLORIDE
     Dosage: 90 MG/8 MG, 2 IN AM (MORNING), 2 IN PM (EVENING), START DATE: 17/APR/2020 (APPROXIMATELY)
     Route: 048
     Dates: start: 202004

REACTIONS (8)
  - Balance disorder [Not Recovered/Not Resolved]
  - Vertigo [Unknown]
  - Eye disorder [Not Recovered/Not Resolved]
  - Nausea [Not Recovered/Not Resolved]
  - Therapeutic product effect incomplete [Unknown]
  - Escherichia urinary tract infection [Not Recovered/Not Resolved]
  - Inner ear disorder [Not Recovered/Not Resolved]
  - Dizziness [Not Recovered/Not Resolved]

NARRATIVE: CASE EVENT DATE: 2020
